FAERS Safety Report 6538138-5 (Version None)
Quarter: 2010Q1

REPORT INFORMATION
  Report Type: 
  Country: None (occurrence: None)
  Receive Date: 20100114
  Receipt Date: 20100106
  Transmission Date: 20100710
  Serious: Yes (Death, Life-Threatening)
  Sender: FDA-Public Use
  Company Number: JP-WYE-H12952410

PATIENT
  Age: 70 Year
  Sex: Male

DRUGS (7)
  1. ANCARON [Suspect]
     Indication: VENTRICULAR FIBRILLATION
     Route: 048
     Dates: start: 20091118, end: 20091224
  2. GASTER [Suspect]
     Indication: GASTRIC ULCER
     Route: 048
     Dates: start: 20091118, end: 20091224
  3. ALEVIATIN [Suspect]
     Indication: EPILEPSY
     Route: 048
     Dates: start: 20091130, end: 20091224
  4. MEROPEN [Suspect]
     Indication: PNEUMONIA
     Route: 042
     Dates: start: 20091222, end: 20091224
  5. ASPIRIN [Concomitant]
     Dosage: DOSE AND FREQUENCY NOT SPECIFIED
     Route: 065
     Dates: start: 20091118
  6. PLAVIX [Suspect]
     Indication: MYOCARDIAL INFARCTION
     Route: 048
     Dates: start: 20091129, end: 20091222
  7. PLAVIX [Suspect]
     Indication: CORONARY ARTERIAL STENT INSERTION

REACTIONS (3)
  - GRANULOCYTOPENIA [None]
  - HEPATIC FUNCTION ABNORMAL [None]
  - MULTI-ORGAN FAILURE [None]
